FAERS Safety Report 10168276 (Version 3)
Quarter: 2014Q3

REPORT INFORMATION
  Report Type: Spontaneous
  Country: US (occurrence: US)
  Receive Date: 20140512
  Receipt Date: 20140731
  Transmission Date: 20150326
  Serious: Yes (Death, Hospitalization, Other)
  Sender: FDA-Public Use
  Company Number: US-GILEAD-2014-0102198

PATIENT
  Age: 82 Year
  Sex: Female

DRUGS (9)
  1. BROVANA [Concomitant]
     Active Substance: ARFORMOTEROL TARTRATE
  2. TYVASO [Concomitant]
     Active Substance: TREPROSTINIL
  3. ADCIRCA [Concomitant]
     Active Substance: TADALAFIL
  4. OMEPRAZOLE. [Concomitant]
     Active Substance: OMEPRAZOLE
  5. LETAIRIS [Suspect]
     Active Substance: AMBRISENTAN
     Indication: PRODUCT USED FOR UNKNOWN INDICATION
     Dosage: 5 MG, QD
     Route: 065
     Dates: start: 20130226, end: 20140429
  6. WARFARIN [Concomitant]
     Active Substance: WARFARIN
  7. BISOPROLOL [Concomitant]
     Active Substance: BISOPROLOL
  8. TORSEMIDE. [Concomitant]
     Active Substance: TORSEMIDE
  9. CARVEDILOL. [Concomitant]
     Active Substance: CARVEDILOL

REACTIONS (2)
  - Acute respiratory failure [Fatal]
  - Pneumonia [Fatal]

NARRATIVE: CASE EVENT DATE: 20140417
